FAERS Safety Report 24843585 (Version 1)
Quarter: 2025Q1

REPORT INFORMATION
  Report Type: Spontaneous
  Country: IT (occurrence: IT)
  Receive Date: 20250115
  Receipt Date: 20250115
  Transmission Date: 20250409
  Serious: Yes (Other)
  Sender: SANOFI AVENTIS
  Company Number: None

PATIENT
  Age: 80 Year
  Sex: Male

DRUGS (4)
  1. DOCETAXEL [Suspect]
     Active Substance: DOCETAXEL
     Indication: Prostate cancer
     Route: 042
     Dates: start: 20240325, end: 20240325
  2. DOCETAXEL [Suspect]
     Active Substance: DOCETAXEL
     Route: 042
     Dates: start: 20240510, end: 20240510
  3. DOCETAXEL [Suspect]
     Active Substance: DOCETAXEL
     Route: 042
     Dates: start: 20240603, end: 20240603
  4. DOCETAXEL [Suspect]
     Active Substance: DOCETAXEL
     Route: 042
     Dates: start: 20240715, end: 20240715

REACTIONS (10)
  - Urinary retention [Recovering/Resolving]
  - Rectal haemorrhage [Recovered/Resolved]
  - Neutropenia [Recovering/Resolving]
  - Asthenia [Recovering/Resolving]
  - Nail dystrophy [Recovering/Resolving]
  - Hypouricaemia [Recovering/Resolving]
  - Oedema peripheral [Recovering/Resolving]
  - Hypocalcaemia [Recovering/Resolving]
  - Haemoglobin decreased [Not Recovered/Not Resolved]
  - Blood bilirubin increased [Recovering/Resolving]

NARRATIVE: CASE EVENT DATE: 20240401
